FAERS Safety Report 4314617-6 (Version None)
Quarter: 2004Q1

REPORT INFORMATION
  Report Type: 
  Country: None (occurrence: None)
  Receive Date: 20040308
  Receipt Date: 20040225
  Transmission Date: 20041129
  Serious: Yes (Death, Hospitalization)
  Sender: FDA-Public Use
  Company Number: 04P-144-0251767-00

PATIENT
  Age: 36 Year
  Sex: Male

DRUGS (7)
  1. KALETRA [Suspect]
     Indication: HIV INFECTION
     Dosage: 3 CAPSULE, 2 IN 1 D, PER ORAL; 3 CAPSULE, PER ORAL
     Route: 048
     Dates: start: 20020823, end: 20030301
  2. KALETRA [Suspect]
     Indication: HIV INFECTION
     Dosage: 3 CAPSULE, 2 IN 1 D, PER ORAL; 3 CAPSULE, PER ORAL
     Route: 048
     Dates: start: 20030101, end: 20030501
  3. ABACAVIR [Concomitant]
  4. LAMIVUDINE [Concomitant]
  5. NELFINAVIR [Concomitant]
  6. NEVIRAPINE [Concomitant]
  7. ANTIRETROVIRAL THERAPY [Concomitant]

REACTIONS (8)
  - ABDOMINAL PAIN [None]
  - ASTHENIA [None]
  - CD4 LYMPHOCYTES DECREASED [None]
  - DIARRHOEA [None]
  - GENERAL PHYSICAL HEALTH DETERIORATION [None]
  - NAUSEA [None]
  - TREATMENT NONCOMPLIANCE [None]
  - VIRAL LOAD INCREASED [None]
